FAERS Safety Report 13668610 (Version 1)
Quarter: 2017Q2

REPORT INFORMATION
  Report Type: Spontaneous
  Country: US (occurrence: US)
  Receive Date: 20170620
  Receipt Date: 20170620
  Transmission Date: 20170830
  Serious: Yes (Other)
  Sender: FDA-Public Use
  Company Number: US-WEST-WARD PHARMACEUTICALS CORP.-US-H14001-17-02013

PATIENT
  Age: 63 Year
  Sex: Female

DRUGS (2)
  1. 6-MERCAPTOPURINE [Suspect]
     Active Substance: MERCAPTOPURINE
     Indication: COLITIS ULCERATIVE
     Route: 065
     Dates: end: 201408
  2. HYDROCORTISONE/PRAMOXINE [Suspect]
     Active Substance: HYDROCORTISONE\PRAMOXINE
     Indication: COLITIS ULCERATIVE
     Route: 065

REACTIONS (1)
  - Anogenital dysplasia [Unknown]
